FAERS Safety Report 12117400 (Version 3)
Quarter: 2016Q2

REPORT INFORMATION
  Report Type: Report from Study
  Country: US (occurrence: US)
  Receive Date: 20160225
  Receipt Date: 20160422
  Transmission Date: 20160815
  Serious: Yes (Death, Hospitalization, Other)
  Sender: FDA-Public Use
  Company Number: US-BIOMARINAP-US-2016-109022

PATIENT
  Age: 41 Year
  Sex: Female

DRUGS (1)
  1. ALDURAZYME [Suspect]
     Active Substance: LARONIDASE
     Indication: MUCOPOLYSACCHARIDOSIS I
     Dosage: 34.8 MG, QW
     Route: 042
     Dates: start: 200307, end: 20160404

REACTIONS (9)
  - Malaise [Unknown]
  - Back disorder [Recovering/Resolving]
  - Dyspnoea [Not Recovered/Not Resolved]
  - Death [Fatal]
  - Hospitalisation [Recovering/Resolving]
  - Coma [Not Recovered/Not Resolved]
  - Pneumonia [Unknown]
  - Cyanosis [Unknown]
  - Visual impairment [Unknown]

NARRATIVE: CASE EVENT DATE: 20160404
